FAERS Safety Report 16987366 (Version 1)
Quarter: 2019Q4

REPORT INFORMATION
  Report Type: Spontaneous
  Country: HU (occurrence: HU)
  Receive Date: 20191102
  Receipt Date: 20191102
  Transmission Date: 20200122
  Serious: Yes (Death, Other)
  Sender: FDA-Public Use
  Company Number: NVSC2019HU021290

PATIENT
  Sex: Male

DRUGS (6)
  1. L-THYROXIN [Concomitant]
     Active Substance: LEVOTHYROXINE SODIUM
     Indication: PRODUCT USED FOR UNKNOWN INDICATION
     Dosage: UNK
     Route: 065
  2. PAZOPANIB [Suspect]
     Active Substance: PAZOPANIB
     Dosage: 800 MG, QD
     Route: 065
     Dates: start: 20180216
  3. VENTOLINE EVOHALER [Concomitant]
     Active Substance: ALBUTEROL SULFATE
     Indication: PRODUCT USED FOR UNKNOWN INDICATION
     Dosage: UNK
     Route: 065
  4. CABOZANTINIB [Concomitant]
     Active Substance: CABOZANTINIB
     Indication: PRODUCT USED FOR UNKNOWN INDICATION
     Dosage: UNK
     Route: 065
     Dates: start: 20190524
  5. PAZOPANIB [Suspect]
     Active Substance: PAZOPANIB
     Dosage: 800 MG, QD
     Route: 065
     Dates: start: 201607, end: 201712
  6. PAZOPANIB [Suspect]
     Active Substance: PAZOPANIB
     Indication: CLEAR CELL RENAL CELL CARCINOMA
     Dosage: 800 MG, QD
     Route: 065
     Dates: start: 20160505, end: 201606

REACTIONS (39)
  - Stress [Unknown]
  - Metastases to liver [Unknown]
  - Alanine aminotransferase increased [Recovered/Resolved]
  - Aspartate aminotransferase increased [Recovered/Resolved]
  - Sensitive skin [Unknown]
  - Photosensitivity reaction [Unknown]
  - Fatigue [Not Recovered/Not Resolved]
  - Skin depigmentation [Not Recovered/Not Resolved]
  - Musculoskeletal pain [Unknown]
  - Blood pressure increased [Unknown]
  - Chest pain [Unknown]
  - Peritoneal disorder [Not Recovered/Not Resolved]
  - Blood alkaline phosphatase increased [Unknown]
  - Abdominal pain [Unknown]
  - Hepatic enzyme increased [Recovering/Resolving]
  - Remission not achieved [Recovered/Resolved]
  - Weight decreased [Unknown]
  - Death [Fatal]
  - Intra-abdominal fluid collection [Unknown]
  - Connective tissue disorder [Unknown]
  - Gastrointestinal disorder [Recovering/Resolving]
  - Bilirubin conjugated increased [Unknown]
  - Blood calcium abnormal [Unknown]
  - Blood lactate dehydrogenase increased [Unknown]
  - Asthenia [Not Recovered/Not Resolved]
  - Diarrhoea [Recovered/Resolved]
  - Nausea [Recovering/Resolving]
  - Renal cancer recurrent [Unknown]
  - Visual impairment [Not Recovered/Not Resolved]
  - Dyspnoea exertional [Unknown]
  - Hair colour changes [Unknown]
  - Blood bilirubin increased [Unknown]
  - Clear cell renal cell carcinoma [Unknown]
  - Taste disorder [Recovered/Resolved]
  - General physical health deterioration [Not Recovered/Not Resolved]
  - Pallor [Unknown]
  - Decreased appetite [Unknown]
  - Malignant neoplasm progression [Unknown]
  - Pleural effusion [Unknown]

NARRATIVE: CASE EVENT DATE: 20160505
